FAERS Safety Report 25968915 (Version 1)
Quarter: 2025Q4

REPORT INFORMATION
  Report Type: Report from Study
  Country: AL (occurrence: AL)
  Receive Date: 20251028
  Receipt Date: 20251028
  Transmission Date: 20260117
  Serious: Yes (Hospitalization)
  Sender: PFIZER
  Company Number: AL-PFIZER INC-PV202500124595

PATIENT
  Age: 80 Year
  Sex: Male

DRUGS (1)
  1. TALIGLUCERASE ALFA [Suspect]
     Active Substance: TALIGLUCERASE ALFA
     Indication: Gaucher^s disease type I
     Dosage: EVERY TWO WEEKS
     Route: 042

REACTIONS (6)
  - Infusion related reaction [Unknown]
  - Respiratory distress [Unknown]
  - Hypotension [Unknown]
  - Tachycardia [Unknown]
  - Chills [Unknown]
  - Radial pulse abnormal [Unknown]
